FAERS Safety Report 7700302-7 (Version None)
Quarter: 2011Q3

REPORT INFORMATION
  Report Type: 
  Country: None (occurrence: None)
  Receive Date: 20110822
  Receipt Date: 20110809
  Transmission Date: 20111222
  Serious: Yes (Other)
  Sender: FDA-Public Use
  Company Number: PHEH2010US00586

PATIENT
  Sex: Female

DRUGS (6)
  1. AMOXICILLIN [Concomitant]
     Dosage: 500 MG, TID
  2. ZOMETA [Suspect]
     Indication: BREAST CANCER
  3. CLINDAMYCIN [Concomitant]
     Dosage: 150 MG, QID
  4. AREDIA [Suspect]
     Indication: BREAST CANCER
  5. CHEMOTHERAPEUTICS [Concomitant]
  6. RADIATION THERAPY [Concomitant]

REACTIONS (14)
  - ANXIETY [None]
  - ANHEDONIA [None]
  - DIZZINESS [None]
  - METASTASES TO BONE [None]
  - METASTASES TO LIVER [None]
  - METASTASES TO CENTRAL NERVOUS SYSTEM [None]
  - METASTASES TO LUNG [None]
  - SINUS DISORDER [None]
  - PAIN [None]
  - ASTHENIA [None]
  - OVARIAN CYST [None]
  - OSTEONECROSIS OF JAW [None]
  - INJURY [None]
  - PYOGENIC GRANULOMA [None]
